FAERS Safety Report 4341864-X (Version None)
Quarter: 2004Q2

REPORT INFORMATION
  Report Type: 
  Country: None (occurrence: None)
  Receive Date: 20040415
  Receipt Date: 20040330
  Transmission Date: 20050107
  Serious: Yes (Hospitalization)
  Sender: FDA-Public Use
  Company Number: FR_040303826

PATIENT
  Age: 56 Year
  Sex: Female

DRUGS (7)
  1. GEMZAR [Suspect]
     Indication: LYMPHOMA
     Dosage: 1000 MG/M2/3 OTHER
     Route: 042
     Dates: start: 20030904, end: 20040913
  2. LEXOMIL (BROMAZEPAM) [Concomitant]
  3. LORAZEPAM [Concomitant]
  4. MORPHINE SULFATE [Concomitant]
  5. DUCOLAX  (BISACODYL) [Concomitant]
  6. LASIX [Concomitant]
  7. ALDACTONE [Concomitant]

REACTIONS (6)
  - ANGIOPATHY [None]
  - ANTINUCLEAR ANTIBODY POSITIVE [None]
  - CRYOGLOBULINS PRESENT [None]
  - OEDEMA PERIPHERAL [None]
  - PARANEOPLASTIC SYNDROME [None]
  - PERIPHERAL ISCHAEMIA [None]
